FAERS Safety Report 15295693 (Version 3)
Quarter: 2018Q4

REPORT INFORMATION
  Report Type: Spontaneous
  Country: US (occurrence: US)
  Receive Date: 20180820
  Receipt Date: 20181003
  Transmission Date: 20190204
  Serious: Yes (Other)
  Sender: FDA-Public Use
  Company Number: PHEH2018US033489

PATIENT
  Sex: Female

DRUGS (5)
  1. PIMAVANSERIN [Suspect]
     Active Substance: PIMAVANSERIN
     Indication: PARKINSON^S DISEASE
  2. PIMAVANSERIN [Suspect]
     Active Substance: PIMAVANSERIN
     Indication: DELUSION
  3. ONDANSETRON [Suspect]
     Active Substance: ONDANSETRON
     Indication: IMPAIRED GASTRIC EMPTYING
  4. PIMAVANSERIN [Suspect]
     Active Substance: PIMAVANSERIN
     Indication: HALLUCINATION
     Dosage: 17 MG, QD
     Route: 065
  5. ONDANSETRON [Suspect]
     Active Substance: ONDANSETRON
     Indication: NAUSEA
     Route: 065

REACTIONS (8)
  - Confusional state [Unknown]
  - Rash pruritic [Unknown]
  - Dizziness [Unknown]
  - Atrial fibrillation [Unknown]
  - Dysphagia [Unknown]
  - Rash [Unknown]
  - Product use in unapproved indication [Unknown]
  - Weight decreased [Unknown]
